FAERS Safety Report 9771242 (Version 2)
Quarter: 2015Q2

REPORT INFORMATION
  Report Type: Spontaneous
  Country: FR (occurrence: FR)
  Receive Date: 20131218
  Receipt Date: 20150521
  Transmission Date: 20150821
  Serious: Yes (Death, Other)
  Sender: FDA-Public Use
  Company Number: PHHY2013FR145497

PATIENT
  Age: 48 Year
  Sex: Male

DRUGS (1)
  1. TRAMADOL [Suspect]
     Active Substance: TRAMADOL
     Indication: PRODUCT USED FOR UNKNOWN INDICATION
     Route: 065

REACTIONS (6)
  - Psychiatric symptom [Unknown]
  - Gastrointestinal disorder [Unknown]
  - Death [Fatal]
  - Intentional overdose [Unknown]
  - Completed suicide [Fatal]
  - Neurological symptom [Unknown]
